FAERS Safety Report 12632546 (Version 2)
Quarter: 2016Q3

REPORT INFORMATION
  Report Type: Spontaneous
  Country: US (occurrence: US)
  Receive Date: 20160808
  Receipt Date: 20160808
  Transmission Date: 20161109
  Serious: No
  Sender: FDA-Public Use
  Company Number: US-BEH-2015055450

PATIENT
  Sex: Female
  Weight: 70 kg

DRUGS (34)
  1. HIZENTRA [Suspect]
     Active Substance: HUMAN IMMUNOGLOBULIN G
     Indication: IMMUNODEFICIENCY COMMON VARIABLE
     Route: 058
  2. VICODIN [Concomitant]
     Active Substance: ACETAMINOPHEN\HYDROCODONE BITARTRATE
  3. OMEPRAZOLE. [Concomitant]
     Active Substance: OMEPRAZOLE
  4. LOSARTAN. [Concomitant]
     Active Substance: LOSARTAN
  5. CELECOXIB. [Concomitant]
     Active Substance: CELECOXIB
  6. ACETAMINOPHEN. [Concomitant]
     Active Substance: ACETAMINOPHEN
  7. RESTASIS [Concomitant]
     Active Substance: CYCLOSPORINE
  8. FIBERCON [Concomitant]
     Active Substance: CALCIUM POLYCARBOPHIL
  9. AMOXICILLIN. [Concomitant]
     Active Substance: AMOXICILLIN
  10. PONARIS [Concomitant]
     Active Substance: CAJUPUT OIL\EUCALYPTUS OIL\PEPPERMINT OIL
  11. IRON [Concomitant]
     Active Substance: IRON
  12. VITAMIN C [Concomitant]
     Active Substance: ASCORBIC ACID
  13. TRIAMTERENE-HCTZ [Concomitant]
     Active Substance: HYDROCHLOROTHIAZIDE\TRIAMTERENE
  14. ALBUTEROL. [Concomitant]
     Active Substance: ALBUTEROL
  15. CARVEDILOL. [Concomitant]
     Active Substance: CARVEDILOL
  16. DOCUSATE SODIUM. [Concomitant]
     Active Substance: DOCUSATE SODIUM
  17. VAGIFEM [Concomitant]
     Active Substance: ESTRADIOL
  18. EPIPEN [Concomitant]
     Active Substance: EPINEPHRINE
  19. FLONASE [Concomitant]
     Active Substance: FLUTICASONE PROPIONATE
  20. ADVAIR HFA [Concomitant]
     Active Substance: FLUTICASONE PROPIONATE\SALMETEROL XINAFOATE
  21. KLOR-CON [Concomitant]
     Active Substance: POTASSIUM CHLORIDE
  22. CALCIUM MAGNESIUM [Concomitant]
     Active Substance: CALCIUM\MAGNESIUM
  23. S-ADENOSYLMETHIONINE SULFATE P-TOLUENESULFONATE [Concomitant]
     Active Substance: ADEMETIONINE SULFATE TOSILATE
  24. PROZAC [Concomitant]
     Active Substance: FLUOXETINE HYDROCHLORIDE
  25. LIPITOR [Concomitant]
     Active Substance: ATORVASTATIN CALCIUM
  26. HIZENTRA [Suspect]
     Active Substance: HUMAN IMMUNOGLOBULIN G
     Route: 058
  27. DIPHENHYDRAMINE. [Concomitant]
     Active Substance: DIPHENHYDRAMINE
  28. LMX [Concomitant]
     Active Substance: LIDOCAINE
  29. GABAPENTIN. [Concomitant]
     Active Substance: GABAPENTIN
  30. COENZYME Q10 [Concomitant]
     Active Substance: UBIDECARENONE
  31. AMLODIPINE [Concomitant]
     Active Substance: AMLODIPINE BESYLATE
  32. FLEXERIL [Concomitant]
     Active Substance: CYCLOBENZAPRINE HYDROCHLORIDE
  33. VITAMIN D [Concomitant]
     Active Substance: CHOLECALCIFEROL
  34. AZELASTINE [Concomitant]
     Active Substance: AZELASTINE

REACTIONS (1)
  - Rash erythematous [Unknown]
